FAERS Safety Report 6916735-2 (Version None)
Quarter: 2010Q3

REPORT INFORMATION
  Report Type: 
  Country: None (occurrence: None)
  Receive Date: 20100810
  Receipt Date: 20100802
  Transmission Date: 20110219
  Serious: Yes (Other)
  Sender: FDA-Public Use
  Company Number: DE-ROCHE-718794

PATIENT

DRUGS (3)
  1. PEGINTERFERON ALFA-2A [Suspect]
     Route: 065
  2. RIBAVIRIN [Suspect]
     Dosage: FREQUENCY: DAILY
     Route: 065
  3. ALBINTERFERON ALFA-2B [Suspect]
     Dosage: DOSE: 900 AND 1200 UG
     Route: 065

REACTIONS (1)
  - SPIROMETRY ABNORMAL [None]
